FAERS Safety Report 5506620-5 (Version None)
Quarter: 2007Q4

REPORT INFORMATION
  Report Type: 
  Country: None (occurrence: None)
  Receive Date: 20071105
  Receipt Date: 20071022
  Transmission Date: 20080405
  Serious: Yes (Hospitalization)
  Sender: FDA-Public Use
  Company Number: GB-ROCHE-425382

PATIENT
  Age: 43 Year
  Sex: Male
  Weight: 71 kg

DRUGS (11)
  1. GANCICLOVIR SODIUM [Suspect]
     Dosage: FORM = VIALS
     Route: 042
     Dates: start: 20050726, end: 20050804
  2. GANCICLOVIR SODIUM [Suspect]
     Route: 042
     Dates: start: 20050805, end: 20050812
  3. VALGANCICLOVIR HCL [Suspect]
     Route: 048
     Dates: start: 20050813, end: 20050909
  4. NEORAL [Concomitant]
     Dosage: RESTARTED ON 17 SEPTEMBER 2005 AT THE SAME DOSE.
     Route: 048
     Dates: start: 20050614
  5. MYCOPHENOLATE MOFETIL [Concomitant]
     Dosage: RESTARTED ON 26 AUGUST 2005 AT THE SAME DOSE.
     Route: 048
     Dates: start: 20050707
  6. MYCOPHENOLATE MOFETIL [Concomitant]
     Route: 048
  7. OMEPRAZOLE [Concomitant]
     Route: 048
     Dates: start: 20050711
  8. 1 ALFACALCIDOL [Concomitant]
     Route: 048
     Dates: start: 20050711
  9. SODIUM BICARBONATE [Concomitant]
     Route: 048
     Dates: start: 20050623
  10. LATANOPROST [Concomitant]
     Dosage: ROUTE = BOTH EYES, AT NIGHT
     Route: 047
     Dates: start: 20050623
  11. ATORVASTATIN CALCIUM [Concomitant]
     Route: 048
     Dates: start: 20031205

REACTIONS (2)
  - CYTOMEGALOVIRUS INFECTION [None]
  - MALAISE [None]
